FAERS Safety Report 15738041 (Version 1)
Quarter: 2018Q4

REPORT INFORMATION
  Report Type: Spontaneous
  Country: US (occurrence: US)
  Receive Date: 20181219
  Receipt Date: 20181219
  Transmission Date: 20190205
  Serious: No
  Sender: FDA-Public Use
  Company Number: US-APOTEX-2018AP023683

PATIENT
  Age: 30 Year
  Sex: Male

DRUGS (12)
  1. ALPRAZOLAM. [Suspect]
     Active Substance: ALPRAZOLAM
     Indication: ANXIETY
     Dosage: 1 MG, QD
     Route: 065
  2. ALPRAZOLAM. [Suspect]
     Active Substance: ALPRAZOLAM
     Dosage: 1 MG, Q.AM (2.5 MG TOTAL DAILY DOSE )
     Route: 065
  3. ALPRAZOLAM. [Suspect]
     Active Substance: ALPRAZOLAM
     Dosage: 2-2.5 MG , Q.AM
     Route: 065
  4. LISDEXAMFETAMINE DIMESYLATE [Concomitant]
     Active Substance: LISDEXAMFETAMINE DIMESYLATE
     Indication: MENTAL DISORDER
     Dosage: 70 MG, Q.AM
     Route: 065
  5. ALPRAZOLAM. [Suspect]
     Active Substance: ALPRAZOLAM
     Dosage: 0.5 MG, AT AFTERNOON (2.5 MG TOTAL DAILY DOSE )
     Route: 065
  6. NORTRIPTYLINE [Concomitant]
     Active Substance: NORTRIPTYLINE
     Indication: MENTAL DISORDER
     Dosage: 60 MG, Q.H.S.
     Route: 065
  7. ALPRAZOLAM. [Suspect]
     Active Substance: ALPRAZOLAM
     Dosage: 1.5 MG, TOTAL DAILY DOSE (SUNDAYS)
     Route: 065
  8. GABAPENTIN. [Concomitant]
     Active Substance: GABAPENTIN
     Indication: MENTAL DISORDER
     Dosage: 1000 MG, TOTAL DAILY DOSE
     Route: 065
  9. ALPRAZOLAM. [Suspect]
     Active Substance: ALPRAZOLAM
     Dosage: 1 MG, BID (SATURDAYS)
     Route: 065
  10. ALPRAZOLAM. [Suspect]
     Active Substance: ALPRAZOLAM
     Dosage: 1 MG, BID
     Route: 065
  11. ALPRAZOLAM. [Suspect]
     Active Substance: ALPRAZOLAM
     Dosage: (2.5 MG TOTAL DAILY DOSE )1 MG, Q.H.S.
     Route: 065
  12. ESCITALOPRAM [Concomitant]
     Active Substance: ESCITALOPRAM OXALATE
     Indication: MENTAL DISORDER
     Dosage: 10 MG, Q.AM
     Route: 065

REACTIONS (2)
  - Anorgasmia [Unknown]
  - Treatment noncompliance [Unknown]
